FAERS Safety Report 16892535 (Version 2)
Quarter: 2020Q2

REPORT INFORMATION
  Report Type: Spontaneous
  Country: US (occurrence: US)
  Receive Date: 20191007
  Receipt Date: 20200415
  Transmission Date: 20200713
  Serious: No
  Sender: FDA-Public Use
  Company Number: US-TOLMAR, INC.-19US000468

PATIENT
  Age: 75 Year
  Sex: Male

DRUGS (1)
  1. ELIGARD [Suspect]
     Active Substance: LEUPROLIDE ACETATE
     Indication: PROSTATE CANCER
     Dosage: 22.5 MG, EVERY 3 MONTHS
     Route: 058

REACTIONS (4)
  - Needle issue [Unknown]
  - Wrong technique in product usage process [Unknown]
  - Product preparation issue [Unknown]
  - Underdose [Unknown]

NARRATIVE: CASE EVENT DATE: 20190923
